FAERS Safety Report 26184182 (Version 1)
Quarter: 2025Q4

REPORT INFORMATION
  Report Type: Spontaneous
  Country: US (occurrence: US)
  Receive Date: 20251222
  Receipt Date: 20251222
  Transmission Date: 20260118
  Serious: No
  Sender: MERCK SHARP & DOHME LLC
  Company Number: US-009507513-2362938

PATIENT
  Age: 70 Year
  Sex: Male

DRUGS (1)
  1. KEYTRUDA [Suspect]
     Active Substance: PEMBROLIZUMAB
     Indication: Lung carcinoma cell type unspecified stage IV
     Dates: start: 202502, end: 202510

REACTIONS (3)
  - Lichenoid keratosis [Not Recovered/Not Resolved]
  - Skin papilloma [Unknown]
  - Pruritus [Unknown]

NARRATIVE: CASE EVENT DATE: 20251001
